FAERS Safety Report 7668717-3 (Version None)
Quarter: 2011Q3

REPORT INFORMATION
  Report Type: 
  Country: None (occurrence: None)
  Receive Date: 20110808
  Receipt Date: 20110727
  Transmission Date: 20111222
  Serious: Yes (Other)
  Sender: FDA-Public Use
  Company Number: GB-JNJFOC-20110800823

PATIENT
  Sex: Female

DRUGS (3)
  1. REMICADE [Suspect]
     Indication: RHEUMATOID ARTHRITIS
     Route: 042
     Dates: start: 20050919, end: 20060915
  2. HYDROXYCHLOROQUINE [Concomitant]
     Dates: start: 20050919
  3. LEFLUNOMIDE [Concomitant]
     Dates: start: 20070813

REACTIONS (1)
  - SKIN CANCER [None]
